FAERS Safety Report 21876991 (Version 2)
Quarter: 2023Q2

REPORT INFORMATION
  Report Type: Other
  Country: SE (occurrence: SE)
  Receive Date: 20230118
  Receipt Date: 20230628
  Transmission Date: 20230722
  Serious: Yes (Other)
  Sender: FDA-Public Use
  Company Number: SE-CELLTRION INC.-2023SE000496

PATIENT

DRUGS (1)
  1. RITUXIMAB [Suspect]
     Active Substance: RITUXIMAB
     Indication: Multiple sclerosis
     Dates: start: 20171004

REACTIONS (2)
  - Gastric sarcoma [Unknown]
  - Intentional product use issue [Unknown]

NARRATIVE: CASE EVENT DATE: 20211008
